FAERS Safety Report 22036136 (Version 4)
Quarter: 2023Q2

REPORT INFORMATION
  Report Type: Spontaneous
  Country: US (occurrence: US)
  Receive Date: 20230225
  Receipt Date: 20230511
  Transmission Date: 20230722
  Serious: Yes (Death, Other)
  Sender: FDA-Public Use
  Company Number: US-002147023-NVSC2023US043912

PATIENT
  Age: 75 Year
  Sex: Male
  Weight: 91.2 kg

DRUGS (1)
  1. PLUVICTO [Suspect]
     Active Substance: LUTETIUM LU-177 VIPIVOTIDE TETRAXETAN
     Indication: Product used for unknown indication
     Dosage: UNK
     Route: 065
     Dates: start: 20230109

REACTIONS (6)
  - Death [Fatal]
  - Cytopenia [Unknown]
  - Failure to thrive [Not Recovered/Not Resolved]
  - Laboratory test abnormal [Unknown]
  - Ill-defined disorder [Unknown]
  - Prostatic specific antigen increased [Unknown]

NARRATIVE: CASE EVENT DATE: 20230220
